FAERS Safety Report 5794674-0 (Version None)
Quarter: 2008Q2

REPORT INFORMATION
  Report Type: 
  Country: None (occurrence: None)
  Receive Date: 20080626
  Receipt Date: 20080612
  Transmission Date: 20081010
  Serious: Yes (Other)
  Sender: FDA-Public Use
  Company Number: DSM-2008-00545

PATIENT
  Age: 80 Year
  Sex: Female
  Weight: 75 kg

DRUGS (6)
  1. OLMESARTAN MEDOXOMIL [Suspect]
     Indication: HYPERTENSION
     Dosage: 10 MG (10 MG, 1 IN 1 D), ORAL
     Route: 048
     Dates: start: 20080507, end: 20080517
  2. WARFARIN SODIUM [Suspect]
     Indication: CEREBROVASCULAR ACCIDENT
     Dosage: ORAL
     Route: 048
     Dates: start: 20011102
  3. BENDROFLUMETHIAZIDE (BENDROFLUMETHIAZIDE)(BENDROFLUMETHIAZIDE) [Concomitant]
  4. FERROUS SULPHATE (FERROUS SULFATE)(FERROUS SULFATE) [Concomitant]
  5. GLICLAZIDE (GLICLAZIDE) (GLICLAZIDE) [Concomitant]
  6. METFORMIN METFORMIN)(METFORMIN) [Concomitant]

REACTIONS (1)
  - INTERNATIONAL NORMALISED RATIO DECREASED [None]
